FAERS Safety Report 6162663-2 (Version None)
Quarter: 2009Q2

REPORT INFORMATION
  Report Type: 
  Country: None (occurrence: None)
  Receive Date: 20090421
  Receipt Date: 20081126
  Transmission Date: 20091009
  Serious: Yes (Hospitalization)
  Sender: FDA-Public Use
  Company Number: US-ASTRAZENECA-2008UW26580

PATIENT
  Age: 84 Year
  Sex: Male

DRUGS (1)
  1. CASODEX [Suspect]
     Route: 048
     Dates: start: 20080428

REACTIONS (3)
  - BRONCHITIS [None]
  - CARDIAC FAILURE CONGESTIVE [None]
  - DYSPNOEA [None]
